FAERS Safety Report 14690597 (Version 1)
Quarter: 2018Q1

REPORT INFORMATION
  Report Type: Spontaneous
  Country: US (occurrence: US)
  Receive Date: 20180328
  Receipt Date: 20180328
  Transmission Date: 20180509
  Serious: No
  Sender: FDA-Public Use
  Company Number: US-TARO-2018TAR00159

PATIENT
  Age: 83 Year
  Sex: Male
  Weight: 83.9 kg

DRUGS (7)
  1. LISINOPRIL. [Concomitant]
     Active Substance: LISINOPRIL
     Dosage: 20 MG, 1X/DAY
  2. TRAMADOL. [Concomitant]
     Active Substance: TRAMADOL
     Dosage: 50 MG, 1X/DAY
  3. FLUOROURACIL TOPICAL CREAM USP 5% [Suspect]
     Active Substance: FLUOROURACIL
     Indication: BASAL CELL CARCINOMA
     Dosage: ^LIGHT LAYER,^ 2X/DAY
     Route: 061
     Dates: start: 20171222, end: 201802
  4. WARFARIN [Concomitant]
     Active Substance: WARFARIN
     Dosage: 5.5 MG, ONCE DAILY 2X/WEEK (TUESDAYS AND THURSDAYS)
  5. WARFARIN [Concomitant]
     Active Substance: WARFARIN
     Dosage: 5 MG, ONCE DAILY 5X/WEEK (MONDAY, WEDNESDAY, FRIDAY, SATURDAY, SUNDAY)
  6. AMLODIPINE [Concomitant]
     Active Substance: AMLODIPINE BESYLATE
     Dosage: 10 MG, 1X/DAY
  7. PANTOPRAZOLE [Concomitant]
     Active Substance: PANTOPRAZOLE
     Dosage: 40 MG, 1X/DAY

REACTIONS (1)
  - Drug ineffective [Recovered/Resolved]

NARRATIVE: CASE EVENT DATE: 20171222
